FAERS Safety Report 12176981 (Version 3)
Quarter: 2017Q2

REPORT INFORMATION
  Report Type: Report from Study
  Country: CA (occurrence: CA)
  Receive Date: 20160315
  Receipt Date: 20170427
  Transmission Date: 20170830
  Serious: Yes (Hospitalization, Other)
  Sender: FDA-Public Use
  Company Number: CA-ROCHE-1715745

PATIENT
  Age: 30 Year
  Sex: Male

DRUGS (16)
  1. OXYCODONE [Concomitant]
     Active Substance: OXYCODONE
  2. ACTEMRA [Suspect]
     Active Substance: TOCILIZUMAB
     Indication: PRODUCT USED FOR UNKNOWN INDICATION
     Route: 042
     Dates: start: 20131021, end: 20131216
  3. RISEDRONATE [Concomitant]
     Active Substance: RISEDRONATE SODIUM
  4. RITUXAN [Suspect]
     Active Substance: RITUXIMAB
     Indication: RHEUMATOID ARTHRITIS
     Route: 042
     Dates: start: 20160222
  5. PREDNISONE. [Suspect]
     Active Substance: PREDNISONE
     Indication: ARTHRITIS
     Route: 065
  6. METHYLPREDNISOLONE. [Concomitant]
     Active Substance: METHYLPREDNISOLONE
     Indication: PREMEDICATION
     Route: 042
     Dates: start: 20160222
  7. CELEXA [Concomitant]
     Active Substance: CITALOPRAM HYDROBROMIDE
  8. METHOTREXATE. [Concomitant]
     Active Substance: METHOTREXATE
  9. DIPHENHYDRAMINE HCL [Concomitant]
     Active Substance: DIPHENHYDRAMINE HYDROCHLORIDE
     Indication: PREMEDICATION
     Route: 048
     Dates: start: 20160222
  10. ACETAMINOPHEN. [Concomitant]
     Active Substance: ACETAMINOPHEN
     Indication: PREMEDICATION
     Route: 048
     Dates: start: 20160222, end: 20160420
  11. TYLENOL [Concomitant]
     Active Substance: ACETAMINOPHEN
  12. PANTOLOC [Concomitant]
     Active Substance: PANTOPRAZOLE SODIUM
  13. ACETAMINOPHEN. [Concomitant]
     Active Substance: ACETAMINOPHEN
     Route: 048
     Dates: start: 20161116
  14. NAPROXEN. [Concomitant]
     Active Substance: NAPROXEN
  15. CYCLOBENZAPRINE. [Concomitant]
     Active Substance: CYCLOBENZAPRINE
  16. IBUPROFEN. [Concomitant]
     Active Substance: IBUPROFEN

REACTIONS (24)
  - Spinal fracture [Unknown]
  - Nausea [Recovering/Resolving]
  - Cough [Unknown]
  - Drug ineffective [Unknown]
  - Lower respiratory tract congestion [Not Recovered/Not Resolved]
  - Bradycardia [Unknown]
  - Pain [Unknown]
  - Muscle strain [Unknown]
  - Cough [Unknown]
  - Intentional product misuse [Unknown]
  - Tooth fracture [Unknown]
  - Back injury [Unknown]
  - Fracture [Recovering/Resolving]
  - Musculoskeletal stiffness [Unknown]
  - Joint swelling [Not Recovered/Not Resolved]
  - Epistaxis [Unknown]
  - Sputum discoloured [Not Recovered/Not Resolved]
  - Oxygen saturation decreased [Unknown]
  - Heart rate decreased [Unknown]
  - Heart rate decreased [Unknown]
  - Malaise [Unknown]
  - Joint stiffness [Not Recovered/Not Resolved]
  - Oral infection [Unknown]
  - Infusion related reaction [Not Recovered/Not Resolved]

NARRATIVE: CASE EVENT DATE: 2015
